FAERS Safety Report 4492459-9 (Version None)
Quarter: 2004Q4

REPORT INFORMATION
  Report Type: 
  Country: None (occurrence: None)
  Receive Date: 20041029
  Receipt Date: 20041018
  Transmission Date: 20050328
  Serious: Yes (Hospitalization)
  Sender: FDA-Public Use
  Company Number: 2004080787

PATIENT
  Age: 63 Year
  Sex: Female

DRUGS (6)
  1. ATORVASTATIN (ATORVASTATIN) [Suspect]
     Indication: HYPERLIPIDAEMIA
     Dosage: 10 MG, ORAL
     Route: 048
     Dates: start: 20030811, end: 20040724
  2. ATENOLOL [Concomitant]
  3. RAMIPRIL [Concomitant]
  4. LANSOPRAZOLE [Concomitant]
  5. OMEGA-3 TRIGLYCERIDES (OMEGA-3 TRIGLYCERIDES) [Concomitant]
  6. ASCRIPTIN (ACETYLSALICYLIC ACID, ALUMINIUM HYDROXIDE, MAGNESIUM HYDROX [Concomitant]

REACTIONS (3)
  - HEPATOTOXICITY [None]
  - LOW DENSITY LIPOPROTEIN INCREASED [None]
  - MYOPATHY TOXIC [None]
